FAERS Safety Report 5091490-2 (Version None)
Quarter: 2006Q3

REPORT INFORMATION
  Report Type: 
  Country: None (occurrence: None)
  Receive Date: 20060727
  Receipt Date: 20060411
  Transmission Date: 20061208
  Serious: Yes (Other)
  Sender: FDA-Public Use
  Company Number: 2006051704

PATIENT
  Age: 55 Year
  Sex: Female
  Weight: 86.1834 kg

DRUGS (8)
  1. LYRICA [Suspect]
     Indication: HYPOAESTHESIA
     Dosage: 150 MG (75 MG,2 IN 1 D)
     Dates: start: 20051201
  2. LYRICA [Suspect]
     Indication: PAIN IN EXTREMITY
     Dosage: 150 MG (75 MG,2 IN 1 D)
     Dates: start: 20051201
  3. ZIAC [Concomitant]
  4. ALPRAZOLAM [Concomitant]
  5. METFORMIN HCL [Concomitant]
  6. GLIPIZIDE [Concomitant]
  7. FLEXERIL [Concomitant]
  8. VITAMINS (VITAMINS) [Concomitant]

REACTIONS (2)
  - HYPOAESTHESIA [None]
  - PAIN [None]
